FAERS Safety Report 9637393 (Version 1)
Quarter: 2013Q4

REPORT INFORMATION
  Report Type: Report from Study
  Country: BR (occurrence: BR)
  Receive Date: 20131022
  Receipt Date: 20131022
  Transmission Date: 20140711
  Serious: Yes (Other)
  Sender: FDA-Public Use
  Company Number: BR-ROCHE-1289488

PATIENT
  Sex: Male
  Weight: 75 kg

DRUGS (4)
  1. INTERFERON ALFA-2A [Suspect]
     Indication: HEPATITIS C
     Route: 065
     Dates: start: 2011
  2. INTERFERON ALFA-2A [Suspect]
     Route: 065
     Dates: start: 2003
  3. RIBAVIRIN [Suspect]
     Indication: HEPATITIS C
     Route: 065
     Dates: start: 2011
  4. RIBAVIRIN [Suspect]
     Route: 065
     Dates: start: 2003

REACTIONS (5)
  - Blood pressure increased [Not Recovered/Not Resolved]
  - Drug ineffective [Unknown]
  - Depression [Recovered/Resolved]
  - Nervousness [Recovered/Resolved]
  - Stress [Recovered/Resolved]
